FAERS Safety Report 19866592 (Version 1)
Quarter: 2021Q3

REPORT INFORMATION
  Report Type: Spontaneous
  Country: US (occurrence: US)
  Receive Date: 20210921
  Receipt Date: 20210921
  Transmission Date: 20211014
  Serious: No
  Sender: FDA-Public Use
  Company Number: US-BRAINTREE LABORATORIES, INC.-2020BTE02857

PATIENT
  Age: 59 Year
  Sex: Female
  Weight: 62.14 kg

DRUGS (1)
  1. SUPREP BOWEL PREP [Suspect]
     Active Substance: MAGNESIUM SULFATE\POTASSIUM SULFATE\SODIUM SULFATE
     Indication: COLONOSCOPY
     Dosage: {2 X 6 OZ. BOTTLE
     Route: 048
     Dates: start: 20200729, end: 20200730

REACTIONS (8)
  - Dysgeusia [None]
  - Feeling cold [None]
  - Retching [None]
  - Parosmia [None]
  - Nausea [None]
  - Tremor [None]
  - Dizziness [None]
  - Blood pressure increased [None]

NARRATIVE: CASE EVENT DATE: 20200729
